FAERS Safety Report 9203344 (Version 1)
Quarter: 2013Q2

REPORT INFORMATION
  Report Type: Spontaneous
  Country: BR (occurrence: BR)
  Receive Date: 20130402
  Receipt Date: 20130402
  Transmission Date: 20140414
  Serious: Yes (Other)
  Sender: FDA-Public Use
  Company Number: BR-JNJFOC-20130318582

PATIENT
  Age: 64 Year
  Sex: Female

DRUGS (2)
  1. TYLEX [Suspect]
     Indication: PAIN
     Route: 048
  2. GLUCOSAMINE / CHONDROITIN [Concomitant]
     Indication: OSTEOARTHRITIS
     Route: 065

REACTIONS (1)
  - Depression [Recovered/Resolved]
